FAERS Safety Report 23865442 (Version 1)
Quarter: 2024Q2

REPORT INFORMATION
  Report Type: Spontaneous
  Country: US (occurrence: US)
  Receive Date: 20240517
  Receipt Date: 20240517
  Transmission Date: 20240717
  Serious: No
  Sender: FDA-Public Use
  Company Number: US-TARSUS PHARMACEUTICALS-TSP-US-2024-000108

PATIENT
  Age: 45 Year
  Sex: Female

DRUGS (1)
  1. XDEMVY [Suspect]
     Active Substance: LOTILANER
     Indication: Eyelid margin crusting
     Dosage: UNK
     Route: 065

REACTIONS (4)
  - Contusion [Unknown]
  - Skin discolouration [Unknown]
  - Therapeutic response decreased [Unknown]
  - Product use issue [Unknown]
